FAERS Safety Report 7689208-X (Version None)
Quarter: 2011Q3

REPORT INFORMATION
  Report Type: 
  Country: None (occurrence: None)
  Receive Date: 20110817
  Receipt Date: 20110808
  Transmission Date: 20111222
  Serious: Yes (Other)
  Sender: FDA-Public Use
  Company Number: US-PERRIGO-11US006005

PATIENT
  Sex: Male
  Weight: 47.619 kg

DRUGS (1)
  1. CHILDREN'S IBUPROFEN [Suspect]
     Indication: HEADACHE
     Dosage: 100 MG, SINGLE
     Route: 048
     Dates: start: 20110721, end: 20110721

REACTIONS (6)
  - DYSPNOEA [None]
  - PALLOR [None]
  - HYPERHIDROSIS [None]
  - WHEEZING [None]
  - INCORRECT DOSE ADMINISTERED [None]
  - HYPERSENSITIVITY [None]
